FAERS Safety Report 4871386-9 (Version None)
Quarter: 2006Q1

REPORT INFORMATION
  Report Type: 
  Country: None (occurrence: None)
  Receive Date: 20060103
  Receipt Date: 20050831
  Transmission Date: 20060701
  Serious: Yes (Other)
  Sender: FDA-Public Use
  Company Number: US-MERCK-0509USA00118

PATIENT
  Age: 47 Year
  Sex: Male
  Weight: 105 kg

DRUGS (10)
  1. VIOXX [Suspect]
     Indication: OSTEOARTHRITIS
     Route: 048
     Dates: start: 20001201, end: 20040601
  2. WARFARIN SODIUM [Concomitant]
     Indication: ANTICOAGULANT THERAPY
     Route: 065
     Dates: start: 20000601
  3. MORPHINE [Concomitant]
     Indication: PAIN
     Route: 065
     Dates: start: 19950101
  4. BACLOFEN [Concomitant]
     Indication: MUSCLE SPASMS
     Route: 065
  5. QUININE SULFATE [Concomitant]
     Indication: MUSCLE SPASMS
     Route: 065
  6. CHLORPHENIRAMINE MALEATE [Concomitant]
     Indication: HYPERSENSITIVITY
     Route: 065
  7. INSULIN [Concomitant]
     Indication: DIABETES MELLITUS
     Route: 065
  8. CALCIUM CARBONATE [Concomitant]
     Indication: PROPHYLAXIS
     Route: 065
  9. ALENDRONATE SODIUM [Concomitant]
     Indication: OSTEOARTHRITIS
     Route: 065
  10. DOCUSATE SODIUM [Concomitant]
     Indication: CONSTIPATION
     Route: 065

REACTIONS (9)
  - BLOOD CHOLESTEROL INCREASED [None]
  - CEREBROVASCULAR ACCIDENT [None]
  - CHEST PAIN [None]
  - CORONARY ARTERY OCCLUSION [None]
  - ERECTILE DYSFUNCTION [None]
  - FLUID RETENTION [None]
  - GASTROOESOPHAGEAL REFLUX DISEASE [None]
  - HYPERTENSION [None]
  - NEOPLASM MALIGNANT [None]
